FAERS Safety Report 10593669 (Version 3)
Quarter: 2018Q3

REPORT INFORMATION
  Report Type: Spontaneous
  Country: US (occurrence: US)
  Receive Date: 20141119
  Receipt Date: 20180919
  Transmission Date: 20181010
  Serious: No
  Sender: FDA-Public Use
  Company Number: US-BIOMARINAP-US-2014-104363

PATIENT
  Sex: Male
  Weight: 62.59 kg

DRUGS (2)
  1. VIMIZIM [Suspect]
     Active Substance: ELOSULFASE ALFA
     Indication: MUCOPOLYSACCHARIDOSIS IV
     Dosage: 85 MG, QW
     Route: 041
     Dates: start: 20140319
  2. VIMIZIM [Suspect]
     Active Substance: ELOSULFASE ALFA
     Dosage: 110 UNK
     Route: 042
     Dates: start: 20140724

REACTIONS (2)
  - Drug dose omission [Unknown]
  - Complication of device insertion [Not Recovered/Not Resolved]
